FAERS Safety Report 13029303 (Version 1)
Quarter: 2016Q4

REPORT INFORMATION
  Report Type: Spontaneous
  Country: KR (occurrence: KR)
  Receive Date: 20161215
  Receipt Date: 20161215
  Transmission Date: 20170207
  Serious: Yes (Hospitalization)
  Sender: FDA-Public Use
  Company Number: KR-UCBSA-2016047140

PATIENT
  Age: 13 Year
  Sex: Female

DRUGS (5)
  1. LACOSAMIDE. [Interacting]
     Active Substance: LACOSAMIDE
     Dosage: 75 MG, 2X/DAY (BID)
  2. VALPROIC ACID. [Interacting]
     Active Substance: VALPROIC ACID
     Indication: SEIZURE
     Dosage: 21.8 MG PER KG PER DAY
  3. LACOSAMIDE. [Suspect]
     Active Substance: LACOSAMIDE
     Indication: SEIZURE
     Dosage: 12.5 MG, 2X/DAY (BID)
  4. LEVETIRACETAM. [Suspect]
     Active Substance: LEVETIRACETAM
     Indication: SEIZURE
     Dosage: 50 MG PER KG PER DAY
  5. ZONISAMIDE. [Concomitant]
     Active Substance: ZONISAMIDE
     Indication: SEIZURE
     Dosage: 10 MG PER KG PER DAY

REACTIONS (5)
  - Toxicity to various agents [Recovering/Resolving]
  - Influenza [Unknown]
  - Drug ineffective [Unknown]
  - Drug interaction [Unknown]
  - Off label use [Unknown]
